FAERS Safety Report 8694817 (Version 3)
Quarter: 2012Q4

REPORT INFORMATION
  Report Type: 
  Country: US (occurrence: US)
  Receive Date: 20120731
  Receipt Date: 20121016
  Transmission Date: 20130627
  Serious: Yes (Other)
  Sender: FDA-Public Use
  Company Number: US-CELGENEUS-163-50794-12072782

PATIENT
  Age: 75 Year
  Sex: Female

DRUGS (2)
  1. VIDAZA [Suspect]
     Indication: MDS
     Dosage: 134 Milligram
     Route: 041
     Dates: start: 20120206
  2. PREVACID [Concomitant]
     Indication: ACID REFLUX (OESOPHAGEAL)
     Route: 048

REACTIONS (2)
  - Angioedema [Recovered/Resolved]
  - Neutrophil count decreased [Unknown]
